FAERS Safety Report 24455832 (Version 2)
Quarter: 2024Q4

REPORT INFORMATION
  Report Type: Report from Study
  Country: RO (occurrence: RO)
  Receive Date: 20241017
  Receipt Date: 20241018
  Transmission Date: 20250115
  Serious: No
  Sender: ROCHE
  Company Number: RO-ROCHE-3504065

PATIENT
  Age: 70 Year
  Sex: Male
  Weight: 80.0 kg

DRUGS (1)
  1. MABTHERA [Suspect]
     Active Substance: RITUXIMAB
     Indication: Diffuse large B-cell lymphoma
     Route: 058

REACTIONS (3)
  - Speech disorder [Unknown]
  - Discomfort [Unknown]
  - Malaise [Unknown]
